FAERS Safety Report 7826920-3 (Version None)
Quarter: 2011Q4

REPORT INFORMATION
  Report Type: 
  Country: None (occurrence: None)
  Receive Date: 20111019
  Receipt Date: 20111019
  Transmission Date: 20120403
  Serious: Yes (Other)
  Sender: FDA-Public Use
  Company Number: None

PATIENT
  Sex: Male
  Weight: 92.5338 kg

DRUGS (1)
  1. LOSARTAN POTASSIUM [Suspect]
     Dosage: 100 MGM QD O
     Route: 048
     Dates: start: 20110701, end: 20110901

REACTIONS (5)
  - COUGH [None]
  - VISION BLURRED [None]
  - HAEMARTHROSIS [None]
  - HYPERGLYCAEMIA [None]
  - GOUT [None]
